FAERS Safety Report 7147994-1 (Version None)
Quarter: 2010Q4

REPORT INFORMATION
  Report Type: 
  Country: None (occurrence: None)
  Receive Date: 20101206
  Receipt Date: 20101206
  Transmission Date: 20110411
  Serious: Yes (Other)
  Sender: FDA-Public Use
  Company Number: None

PATIENT
  Sex: Male
  Weight: 74.8435 kg

DRUGS (2)
  1. OXYCODONE HCL [Suspect]
     Indication: FRACTURE
     Dosage: 15MG 4X DAILY PO
     Route: 048
     Dates: start: 20100705, end: 20101205
  2. OXYCODONE HCL [Suspect]
     Indication: PAIN
     Dosage: 15MG 4X DAILY PO
     Route: 048
     Dates: start: 20100705, end: 20101205

REACTIONS (1)
  - ACNE CYSTIC [None]
